FAERS Safety Report 9155224 (Version 2)
Quarter: 2013Q3

REPORT INFORMATION
  Report Type: Spontaneous
  Country: FR (occurrence: FR)
  Receive Date: 20130311
  Receipt Date: 20130719
  Transmission Date: 20140515
  Serious: Yes (Other)
  Sender: FDA-Public Use
  Company Number: FR-ABBOTT-13P-056-1058480-00

PATIENT
  Age: 49 Year
  Sex: Male

DRUGS (3)
  1. NORVIR [Suspect]
     Indication: HIV INFECTION
     Dosage: 1 DOSAGE FORM DAILY
     Route: 048
     Dates: start: 20100831
  2. REYATAZ [Suspect]
     Indication: HIV INFECTION
     Dates: start: 20110420, end: 20130521
  3. TRUVADA [Concomitant]
     Indication: HIV INFECTION
     Dates: start: 20110420

REACTIONS (1)
  - Alopecia [Unknown]
